FAERS Safety Report 5428660-7 (Version None)
Quarter: 2007Q3

REPORT INFORMATION
  Report Type: 
  Country: None (occurrence: None)
  Receive Date: 20070827
  Receipt Date: 20070815
  Transmission Date: 20080115
  Serious: Yes (Hospitalization, Disabling)
  Sender: FDA-Public Use
  Company Number: 163-21880-07051602

PATIENT
  Age: 81 Year
  Sex: Female
  Weight: 59.8 kg

DRUGS (3)
  1. REVLIMID [Suspect]
     Indication: MULTIPLE MYELOMA
     Dosage: 25 MG, QD ON DAYS 1-21, EVERY 28 DAYS, ORAL
     Route: 048
     Dates: start: 20060407, end: 20061128
  2. DEXAMETHASONE TAB [Suspect]
     Indication: MULTIPLE MYELOMA
     Dosage: 40 MG, QD ON DAYS 1-4, 9-12, + 17-20, Q 28 DAYS, ORAL
     Route: 048
     Dates: start: 20060407, end: 20061001
  3. LASIX [Concomitant]

REACTIONS (6)
  - DEEP VEIN THROMBOSIS [None]
  - HYPERGLYCAEMIA [None]
  - INSOMNIA [None]
  - OPTIC DISC HAEMORRHAGE [None]
  - PERIPHERAL SENSORY NEUROPATHY [None]
  - RETINAL VEIN OCCLUSION [None]
